FAERS Safety Report 8050049-5 (Version None)
Quarter: 2012Q1

REPORT INFORMATION
  Report Type: 
  Country: None (occurrence: None)
  Receive Date: 20120117
  Receipt Date: 20120109
  Transmission Date: 20120608
  Serious: Yes (Other)
  Sender: FDA-Public Use
  Company Number: US-BAYER-2010-000699

PATIENT
  Age: 36 Year
  Sex: Female
  Weight: 49.887 kg

DRUGS (2)
  1. BENAZEPRIL HYDROCHLORIDE [Concomitant]
     Dosage: UNK
     Dates: start: 20080601
  2. YASMIN [Suspect]
     Indication: PREMENSTRUAL SYNDROME
     Dosage: UNK
     Route: 048
     Dates: start: 20070401

REACTIONS (3)
  - VAGINAL HAEMORRHAGE [None]
  - CHOLELITHIASIS [None]
  - HYPERTENSION [None]
